FAERS Safety Report 24276935 (Version 2)
Quarter: 2024Q4

REPORT INFORMATION
  Report Type: Spontaneous
  Country: DE (occurrence: DE)
  Receive Date: 20240903
  Receipt Date: 20241022
  Transmission Date: 20250115
  Serious: Yes (Other)
  Sender: NOVARTIS
  Company Number: DE-002147023-NVSC2024DE166720

PATIENT
  Age: 33 Year
  Sex: Female

DRUGS (9)
  1. CARBAMAZEPINE [Suspect]
     Active Substance: CARBAMAZEPINE
     Indication: Epilepsy
     Dosage: 600 MG, BID (MORNING AND EVENING)
     Route: 065
  2. CARBAMAZEPINE [Suspect]
     Active Substance: CARBAMAZEPINE
     Dosage: 500 MG, BID (1-0-1)
     Route: 065
     Dates: start: 2012
  3. CARBAMAZEPINE [Suspect]
     Active Substance: CARBAMAZEPINE
     Dosage: 200 MG, BID (1-0-1)
     Route: 065
     Dates: start: 202408, end: 2024
  4. CARBAMAZEPINE [Suspect]
     Active Substance: CARBAMAZEPINE
     Dosage: 400 MG, BID (1-0-1)
     Route: 065
     Dates: start: 202408, end: 2024
  5. CARBAMAZEPINE [Suspect]
     Active Substance: CARBAMAZEPINE
     Dosage: 600 MG, QD (0-0-1)
     Route: 065
     Dates: start: 202408, end: 2024
  6. CARBAMAZEPINE [Suspect]
     Active Substance: CARBAMAZEPINE
     Dosage: 500 MG, QD (1-0-0)
     Route: 065
     Dates: start: 202408, end: 2024
  7. CARBAMAZEPINE [Suspect]
     Active Substance: CARBAMAZEPINE
     Dosage: 1000 MG, QD
     Route: 065
     Dates: start: 2024
  8. TOPAMAX [Concomitant]
     Active Substance: TOPIRAMATE
     Indication: Product used for unknown indication
     Dosage: UNK
     Route: 065
  9. CLOBAZAM [Concomitant]
     Active Substance: CLOBAZAM
     Indication: Product used for unknown indication
     Dosage: UNK (2X5MG)
     Route: 065
     Dates: start: 2023

REACTIONS (24)
  - Seizure [Unknown]
  - Autoimmune thyroiditis [Unknown]
  - Drug resistance [Unknown]
  - Visual impairment [Unknown]
  - Back disorder [Unknown]
  - Muscle spasticity [Unknown]
  - Facial discomfort [Unknown]
  - Limb discomfort [Unknown]
  - Histamine intolerance [Unknown]
  - Intestinal barrier dysfunction [Unknown]
  - Gamma-glutamyltransferase increased [Unknown]
  - Dizziness [Unknown]
  - Speech disorder [Unknown]
  - Muscle spasms [Unknown]
  - Headache [Unknown]
  - Coronavirus infection [Unknown]
  - Gastrointestinal disorder [Unknown]
  - Constipation [Unknown]
  - Abdominal pain upper [Unknown]
  - Cholelithiasis [Unknown]
  - Leiomyoma [Unknown]
  - Endometriosis [Unknown]
  - Cognitive disorder [Unknown]
  - Malaise [Unknown]
